FAERS Safety Report 4341050-3 (Version None)
Quarter: 2004Q2

REPORT INFORMATION
  Report Type: 
  Country: None (occurrence: None)
  Receive Date: 20040419
  Receipt Date: 20040325
  Transmission Date: 20050107
  Serious: Yes (Death, Hospitalization, Other)
  Sender: FDA-Public Use
  Company Number: JP-MERCK-0403USA02584

PATIENT
  Age: 48 Year
  Sex: Female

DRUGS (2)
  1. CILAZAPRIL [Suspect]
     Indication: HYPERTENSION
     Route: 065
     Dates: start: 19980201, end: 19980301
  2. ALDOMET [Suspect]
     Indication: HYPERTENSION
     Route: 048
     Dates: start: 19980201, end: 19980301

REACTIONS (8)
  - BILIARY TRACT DISORDER [None]
  - HAEMODIALYSIS [None]
  - HEPATIC FAILURE [None]
  - HEPATIC STEATOSIS [None]
  - HEPATITIS FULMINANT [None]
  - HEPATOCELLULAR DAMAGE [None]
  - JAUNDICE [None]
  - MALAISE [None]
